FAERS Safety Report 17446854 (Version 1)
Quarter: 2020Q1

REPORT INFORMATION
  Report Type: Spontaneous
  Country: AT (occurrence: AT)
  Receive Date: 20200221
  Receipt Date: 20200221
  Transmission Date: 20200409
  Serious: Yes (Disabling, Other)
  Sender: FDA-Public Use
  Company Number: AT-SA-2020SA041735

PATIENT
  Age: 34 Year
  Sex: Female
  Weight: 63 kg

DRUGS (1)
  1. AUBAGIO [Suspect]
     Active Substance: TERIFLUNOMIDE
     Indication: MULTIPLE SCLEROSIS
     Dosage: 14 MG, QD
     Route: 048
     Dates: start: 20180105, end: 20190630

REACTIONS (2)
  - Tumefactive multiple sclerosis [Not Recovered/Not Resolved]
  - Hemianopia homonymous [Not Recovered/Not Resolved]

NARRATIVE: CASE EVENT DATE: 20190614
